FAERS Safety Report 7645156-2 (Version None)
Quarter: 2011Q3

REPORT INFORMATION
  Report Type: 
  Country: None (occurrence: None)
  Receive Date: 20110725
  Receipt Date: 20110708
  Transmission Date: 20111222
  Serious: Yes (Death)
  Sender: FDA-Public Use
  Company Number: FDB-2011-024

PATIENT
  Age: 17 Year
  Sex: Female

DRUGS (16)
  1. AMIODARONE HCL [Concomitant]
  2. FRAGMIN [Concomitant]
  3. LEVOPHED [Concomitant]
  4. LEVOPHED [Concomitant]
  5. CLINDAMYCIN [Concomitant]
  6. LASIX [Concomitant]
  7. KEPPRA [Concomitant]
  8. AMOXICILLIN [Concomitant]
  9. CAPTOPRIL [Concomitant]
  10. PHENOBARBITAL TAB [Concomitant]
  11. CEFEPIME [Concomitant]
  12. ASPIRIN [Concomitant]
  13. PULMOLITE [Suspect]
     Indication: PULMONARY EMBOLISM
     Dates: start: 20110506
  14. PULMOLITE [Suspect]
     Indication: VENTILATION/PERFUSION SCAN
     Dates: start: 20110506
  15. CALCIUM GLUCONATE [Concomitant]
  16. PROTONIX [Concomitant]

REACTIONS (2)
  - CONDITION AGGRAVATED [None]
  - PNEUMONIA [None]
